FAERS Safety Report 11689133 (Version 2)
Quarter: 2015Q4

REPORT INFORMATION
  Report Type: Spontaneous
  Country: DE (occurrence: DE)
  Receive Date: 20151102
  Receipt Date: 20151127
  Transmission Date: 20160304
  Serious: Yes (Hospitalization)
  Sender: FDA-Public Use
  Company Number: DE-ASTRAZENECA-2015SF04683

PATIENT
  Age: 52 Year
  Sex: Female

DRUGS (7)
  1. ELIQUIS [Concomitant]
     Active Substance: APIXABAN
  2. SIMVABETA [Concomitant]
     Active Substance: SIMVASTATIN
  3. CYMBALTA [Concomitant]
     Active Substance: DULOXETINE HYDROCHLORIDE
     Indication: DEPRESSION
     Route: 048
  4. SEROQUEL XR [Suspect]
     Active Substance: QUETIAPINE FUMARATE
     Indication: DEPRESSION
     Route: 048
     Dates: start: 2015
  5. LYRICA [Concomitant]
     Active Substance: PREGABALIN
     Route: 048
  6. ATOSIL [Concomitant]
     Active Substance: PROMETHAZINE HYDROCHLORIDE
  7. TAVOR [Concomitant]
     Active Substance: LORAZEPAM

REACTIONS (2)
  - Pleural effusion [Unknown]
  - Pulmonary embolism [Recovered/Resolved]

NARRATIVE: CASE EVENT DATE: 201506
